FAERS Safety Report 12746197 (Version 1)
Quarter: 2016Q3

REPORT INFORMATION
  Report Type: Spontaneous
  Country: US (occurrence: US)
  Receive Date: 20160915
  Receipt Date: 20160915
  Transmission Date: 20161109
  Serious: No
  Sender: FDA-Public Use
  Company Number: US-ELI_LILLY_AND_COMPANY-US201609002891

PATIENT
  Sex: Female

DRUGS (5)
  1. HUMULIN R [Suspect]
     Active Substance: INSULIN HUMAN
     Indication: DIABETES MELLITUS
     Dosage: 30 U, TID
     Route: 065
     Dates: start: 1986
  2. HUMALOG [Suspect]
     Active Substance: INSULIN LISPRO
     Indication: DIABETES MELLITUS
     Dosage: 30 U, TID
     Route: 065
     Dates: start: 20160701
  3. LANTUS [Concomitant]
     Active Substance: INSULIN GLARGINE
     Dosage: 60 U, EACH MORNING
     Route: 065
  4. HUMALOG [Suspect]
     Active Substance: INSULIN LISPRO
     Dosage: 30 U, TID
     Route: 065
     Dates: start: 20160701
  5. LANTUS [Concomitant]
     Active Substance: INSULIN GLARGINE
     Dosage: 28 U, EACH EVENING
     Route: 065

REACTIONS (4)
  - Neuropathy peripheral [Unknown]
  - Blood glucose decreased [Unknown]
  - Macular oedema [Unknown]
  - Wrong drug administered [Unknown]

NARRATIVE: CASE EVENT DATE: 20160701
